FAERS Safety Report 6542822-7 (Version None)
Quarter: 2010Q1

REPORT INFORMATION
  Report Type: 
  Country: None (occurrence: None)
  Receive Date: 20100114
  Receipt Date: 20091228
  Transmission Date: 20100710
  Serious: Yes (Life-Threatening)
  Sender: FDA-Public Use
  Company Number: JPI-P-009462

PATIENT
  Age: 11 Year
  Sex: Female

DRUGS (3)
  1. LUVOX [Suspect]
     Indication: CHILDHOOD DEPRESSION
     Dosage: (50 MG,1 D),ORAL
     Route: 048
     Dates: start: 20090730, end: 20091104
  2. LUVOX [Suspect]
     Indication: DEPRESSION
     Dosage: (50 MG,1 D),ORAL
     Route: 048
     Dates: start: 20090730, end: 20091104
  3. MIDODRINE HYDROCHLORIDE [Suspect]
     Indication: ORTHOSTATIC HYPOTENSION
     Dosage: (4 MG),ORAL
     Route: 048
     Dates: start: 20090212, end: 20091209

REACTIONS (2)
  - CONDITION AGGRAVATED [None]
  - ELECTROCARDIOGRAM QT PROLONGED [None]
